FAERS Safety Report 15871899 (Version 1)
Quarter: 2019Q1

REPORT INFORMATION
  Report Type: Other
  Country: US (occurrence: US)
  Receive Date: 20190126
  Receipt Date: 20190126
  Transmission Date: 20190417
  Serious: Yes (Hospitalization, Other)
  Sender: FDA-Public Use
  Company Number: US-ACORDA-ACO_147154_2018

PATIENT
  Age: 70 Year
  Sex: Female

DRUGS (2)
  1. AMPYRA [Suspect]
     Active Substance: DALFAMPRIDINE
     Dosage: 10 MG, BID
     Route: 048
     Dates: start: 20100824
  2. AMPYRA [Suspect]
     Active Substance: DALFAMPRIDINE
     Indication: MULTIPLE SCLEROSIS
     Dosage: 10 MG, BID
     Route: 048
     Dates: start: 20100824

REACTIONS (12)
  - Multiple sclerosis relapse [Recovering/Resolving]
  - Head injury [Unknown]
  - Chest pain [Unknown]
  - Skin abrasion [Unknown]
  - Chest injury [Unknown]
  - Mental status changes [Recovering/Resolving]
  - Urinary tract infection [Recovered/Resolved]
  - Escherichia urinary tract infection [Unknown]
  - Fall [Unknown]
  - Muscle strain [Unknown]
  - Soft tissue injury [Unknown]
  - Urinary tract infection staphylococcal [Unknown]

NARRATIVE: CASE EVENT DATE: 20180126
